FAERS Safety Report 15598619 (Version 2)
Quarter: 2018Q4

REPORT INFORMATION
  Report Type: Spontaneous
  Country: MY (occurrence: MY)
  Receive Date: 20181108
  Receipt Date: 20181108
  Transmission Date: 20190205
  Serious: Yes (Other)
  Sender: FDA-Public Use
  Company Number: PHHY2018MY144282

PATIENT
  Age: 40 Year
  Sex: Female

DRUGS (5)
  1. PREDNISOLONE. [Suspect]
     Active Substance: PREDNISOLONE
     Indication: ANTI FACTOR VIII ANTIBODY INCREASED
     Route: 065
  2. RITUXIMAB. [Suspect]
     Active Substance: RITUXIMAB
     Indication: ANTI FACTOR VIII ANTIBODY INCREASED
     Route: 065
  3. PREDNISOLONE. [Suspect]
     Active Substance: PREDNISOLONE
     Dosage: 40 MG, QD
     Route: 065
  4. CYCLOPHOSPHAMIDE. [Suspect]
     Active Substance: CYCLOPHOSPHAMIDE
     Indication: ANTI FACTOR VIII ANTIBODY INCREASED
     Route: 065
  5. CYCLOPHOSPHAMIDE. [Suspect]
     Active Substance: CYCLOPHOSPHAMIDE
     Dosage: UNK
     Route: 042

REACTIONS (4)
  - Retroperitoneal haematoma [Unknown]
  - Haemoglobin decreased [Unknown]
  - Activated partial thromboplastin time prolonged [Unknown]
  - Drug ineffective for unapproved indication [Unknown]
